FAERS Safety Report 21024994 (Version 2)
Quarter: 2022Q3

REPORT INFORMATION
  Report Type: Report from Study
  Country: FR (occurrence: FR)
  Receive Date: 20220629
  Receipt Date: 20220705
  Transmission Date: 20221026
  Serious: Yes (Life-Threatening, Other)
  Sender: FDA-Public Use
  Company Number: FR-BRISTOL-MYERS SQUIBB COMPANY-2022-064218

PATIENT
  Age: 71 Year
  Sex: Female
  Weight: 55 kg

DRUGS (14)
  1. POMALIDOMIDE [Suspect]
     Active Substance: POMALIDOMIDE
     Indication: Plasma cell myeloma
     Dosage: FIRST CYCLE
     Route: 065
     Dates: start: 20220411
  2. POMALIDOMIDE [Suspect]
     Active Substance: POMALIDOMIDE
     Dosage: CURRENT CYCLE: CYCLE 2, DAY OF CYCLE 27
     Route: 065
     Dates: end: 20220608
  3. POMALIDOMIDE [Suspect]
     Active Substance: POMALIDOMIDE
     Dosage: RESTART DATE
     Route: 065
     Dates: start: 20220622
  4. POMALIDOMIDE [Suspect]
     Active Substance: POMALIDOMIDE
     Route: 065
     Dates: end: 20220615
  5. DEXAMETHASONE [Suspect]
     Active Substance: DEXAMETHASONE
     Indication: Plasma cell myeloma
     Dosage: FIRST CYCLE
     Route: 065
     Dates: start: 20220411
  6. DEXAMETHASONE [Suspect]
     Active Substance: DEXAMETHASONE
     Dosage: CURRENT CYCLE: CYCLE 2, DAY OF CYCLE 27
     Route: 065
     Dates: end: 20220525
  7. ISATUXIMAB [Suspect]
     Active Substance: ISATUXIMAB
     Indication: Plasma cell myeloma
     Dosage: FIRST CYCLE
     Route: 065
     Dates: start: 20220411
  8. ISATUXIMAB [Suspect]
     Active Substance: ISATUXIMAB
     Dosage: CURRENT CYCLE: CYCLE 2, DAY OF CYCLE 27
     Route: 065
     Dates: end: 20220518
  9. ISATUXIMAB [Suspect]
     Active Substance: ISATUXIMAB
     Dosage: RESTART DATE
     Route: 065
     Dates: start: 20220622
  10. ISATUXIMAB [Suspect]
     Active Substance: ISATUXIMAB
     Route: 065
     Dates: end: 20220602
  11. CARFILZOMIB [Suspect]
     Active Substance: CARFILZOMIB
     Indication: Plasma cell myeloma
     Dosage: FIRST CYCLE
     Route: 065
     Dates: start: 20220411
  12. CARFILZOMIB [Suspect]
     Active Substance: CARFILZOMIB
     Dosage: CURRENT CYCLE: CYCLE 2, DAY OF CYCLE 27
     Route: 065
     Dates: end: 20220525
  13. CARFILZOMIB [Suspect]
     Active Substance: CARFILZOMIB
     Dosage: RESTART DATE
     Route: 065
     Dates: start: 20220622
  14. CARFILZOMIB [Suspect]
     Active Substance: CARFILZOMIB
     Route: 065
     Dates: end: 20220602

REACTIONS (1)
  - Neutropenia [Recovered/Resolved]

NARRATIVE: CASE EVENT DATE: 20220614
